FAERS Safety Report 21706312 (Version 2)
Quarter: 2022Q4

REPORT INFORMATION
  Report Type: Spontaneous
  Country: US (occurrence: US)
  Receive Date: 20221209
  Receipt Date: 20221215
  Transmission Date: 20230112
  Serious: No
  Sender: FDA-Public Use
  Company Number: US-SANOFI-01394189

PATIENT
  Sex: Female

DRUGS (1)
  1. MULTAQ [Suspect]
     Active Substance: DRONEDARONE
     Dosage: UNK
     Route: 065
     Dates: start: 20221201

REACTIONS (4)
  - Abdominal discomfort [Unknown]
  - Dysphagia [Unknown]
  - Dyspepsia [Unknown]
  - Pruritus [Unknown]
